FAERS Safety Report 5800762-2 (Version None)
Quarter: 2008Q3

REPORT INFORMATION
  Report Type: 
  Country: None (occurrence: None)
  Receive Date: 20080703
  Receipt Date: 20080627
  Transmission Date: 20090109
  Serious: Yes (Hospitalization)
  Sender: FDA-Public Use
  Company Number: BR-ABBOTT-08P-020-0459808-00

PATIENT
  Sex: Female

DRUGS (2)
  1. HUMIRA [Suspect]
     Indication: RHEUMATOID ARTHRITIS
     Route: 058
     Dates: start: 20051001, end: 20071118
  2. UNKNOWN MEDICATIONS [Concomitant]
     Indication: RHEUMATOID ARTHRITIS
     Dates: end: 20071118

REACTIONS (5)
  - ANAEMIA [None]
  - ANAPHYLACTIC SHOCK [None]
  - CARDIAC DISORDER [None]
  - RENAL FAILURE [None]
  - TUBERCULOSIS [None]
